FAERS Safety Report 21397850 (Version 1)
Quarter: 2022Q3

REPORT INFORMATION
  Report Type: Report from Study
  Country: US (occurrence: US)
  Receive Date: 20220930
  Receipt Date: 20220930
  Transmission Date: 20221027
  Serious: Yes (Other)
  Sender: FDA-Public Use
  Company Number: US-INCYTE CORPORATION-2022IN009376

PATIENT

DRUGS (5)
  1. JAKAFI [Suspect]
     Active Substance: RUXOLITINIB
     Indication: Myelofibrosis
     Dosage: 5 MILLIGRAM, BID
     Route: 065
     Dates: start: 2020
  2. JAKAFI [Suspect]
     Active Substance: RUXOLITINIB
     Dosage: 5 MILLIGRAM, QD
     Route: 065
     Dates: start: 2020
  3. SYNTHROID [Concomitant]
     Active Substance: LEVOTHYROXINE SODIUM
     Indication: Product used for unknown indication
     Route: 065
  4. METOPROLOL [Concomitant]
     Active Substance: METOPROLOL
     Indication: Product used for unknown indication
     Route: 065
  5. TRAVATAN [Concomitant]
     Active Substance: TRAVOPROST
     Indication: Glaucoma
     Route: 065

REACTIONS (6)
  - Myelofibrosis [Unknown]
  - Fatigue [Unknown]
  - Full blood count abnormal [Unknown]
  - Intentional product use issue [Unknown]
  - Diarrhoea [Unknown]
  - Disease progression [Unknown]
